FAERS Safety Report 8924911 (Version 1)
Quarter: 2012Q4

REPORT INFORMATION
  Report Type: 
  Country: FR (occurrence: FR)
  Receive Date: 20121126
  Receipt Date: 20121126
  Transmission Date: 20130627
  Serious: Yes (Hospitalization)
  Sender: FDA-Public Use
  Company Number: FR-B.I. PHARMACEUTICALS,INC./RIDGEFIELD-2012-FF-01639FF

PATIENT
  Age: 87 Year
  Sex: Female

DRUGS (6)
  1. PRADAXA [Suspect]
     Indication: ATRIAL FIBRILLATION
     Dosage: 150 mg
     Route: 048
     Dates: start: 20120917, end: 20120922
  2. BISOPROLOL [Concomitant]
     Route: 048
  3. LASILIX SPECIAL [Concomitant]
     Dosage: 125 mg
     Route: 048
  4. LACTEOL [Concomitant]
     Route: 048
  5. INEXIUM [Concomitant]
     Route: 048
  6. OXYNORM [Concomitant]
     Route: 048

REACTIONS (2)
  - Rectal haemorrhage [Recovered/Resolved]
  - Anaemia [Recovered/Resolved]
